FAERS Safety Report 16460107 (Version 1)
Quarter: 2019Q2

REPORT INFORMATION
  Report Type: Report from Study
  Country: DE (occurrence: DE)
  Receive Date: 20190620
  Receipt Date: 20190620
  Transmission Date: 20190711
  Serious: Yes (Other)
  Sender: FDA-Public Use
  Company Number: DE-AMGEN-DEUNI2019096145

PATIENT
  Age: 66 Year
  Sex: Male
  Weight: 68 kg

DRUGS (18)
  1. FLUOROURACIL. [Suspect]
     Active Substance: FLUOROURACIL
     Dosage: 732 MILLIGRAM
     Route: 040
     Dates: start: 20190226
  2. FOLINIC ACID [Suspect]
     Active Substance: LEUCOVORIN
     Dosage: 740 MILLIGRAM
     Route: 065
     Dates: start: 20181217
  3. FOLINIC ACID [Suspect]
     Active Substance: LEUCOVORIN
     Dosage: 732 MILLIGRAM
     Route: 065
     Dates: start: 20190226
  4. FLUOROURACIL. [Suspect]
     Active Substance: FLUOROURACIL
     Dosage: 740 MILLIGRAM
     Route: 040
     Dates: start: 20181217
  5. IRINOTECAN [Suspect]
     Active Substance: IRINOTECAN
     Indication: COLORECTAL CANCER METASTATIC
     Dosage: 331 MILLIGRAM
     Route: 065
     Dates: start: 20181203
  6. PANITUMUMAB [Suspect]
     Active Substance: PANITUMUMAB
     Dosage: 414 MILLIGRAM
     Route: 042
     Dates: start: 20181217
  7. LOPERAMIDE RATIOPHARM [Concomitant]
     Active Substance: LOPERAMIDE HYDROCHLORIDE
     Indication: DIARRHOEA
     Dosage: 2 MILLIGRAM, AS NECESSARY
     Route: 048
     Dates: start: 20181203
  8. DOXYCYCLIN RATIOPHARM [Concomitant]
     Indication: PROPHYLAXIS
     Dosage: 100 MILLIGRAM, BID
     Route: 048
     Dates: start: 20181203, end: 20190507
  9. PANITUMUMAB [Suspect]
     Active Substance: PANITUMUMAB
     Dosage: 402 MILLIGRAM
     Route: 042
     Dates: start: 20190226
  10. FOLINIC ACID [Suspect]
     Active Substance: LEUCOVORIN
     Indication: COLORECTAL CANCER METASTATIC
     Dosage: 736 MILLIGRAM
     Route: 065
     Dates: start: 20181203
  11. ONDANSETRON RATIOPHARM [Concomitant]
     Indication: PROPHYLAXIS OF NAUSEA AND VOMITING
     Dosage: 8 MILLIGRAM, AS NECESSARY
     Route: 048
     Dates: start: 20181203
  12. FLUOROURACIL. [Suspect]
     Active Substance: FLUOROURACIL
     Indication: COLORECTAL CANCER METASTATIC
     Dosage: 736 MILLIGRAM
     Route: 040
     Dates: start: 20181203
  13. FLUOROURACIL. [Suspect]
     Active Substance: FLUOROURACIL
     Dosage: 4440 MILLIGRAM
     Route: 042
     Dates: start: 20181217
  14. FLUOROURACIL. [Suspect]
     Active Substance: FLUOROURACIL
     Dosage: 4392 MILLIGRAM
     Route: 042
     Dates: start: 20190226
  15. IRINOTECAN [Suspect]
     Active Substance: IRINOTECAN
     Dosage: 333 MILLIGRAM
     Route: 065
     Dates: start: 20181217
  16. PANITUMUMAB [Suspect]
     Active Substance: PANITUMUMAB
     Indication: COLORECTAL CANCER METASTATIC
     Dosage: 408 MILLIGRAM
     Route: 042
     Dates: start: 20181203
  17. FLUOROURACIL. [Suspect]
     Active Substance: FLUOROURACIL
     Dosage: 4416 MILLIGRAM
     Route: 042
     Dates: start: 20181203
  18. IRINOTECAN [Suspect]
     Active Substance: IRINOTECAN
     Dosage: 329 MILLIGRAM
     Route: 065
     Dates: start: 20190226

REACTIONS (1)
  - Neutropenia [Recovered/Resolved]

NARRATIVE: CASE EVENT DATE: 20190211
